FAERS Safety Report 13004457 (Version 1)
Quarter: 2016Q4

REPORT INFORMATION
  Report Type: Spontaneous
  Country: GB (occurrence: GB)
  Receive Date: 20161207
  Receipt Date: 20161207
  Transmission Date: 20170207
  Serious: Yes (Other)
  Sender: FDA-Public Use
  Company Number: GB-AMGEN-GBRSP2016170062

PATIENT
  Age: 78 Year
  Sex: Female

DRUGS (2)
  1. PROLIA [Suspect]
     Active Substance: DENOSUMAB
     Indication: OSTEOPOROSIS
     Dosage: 60 MG, Q6MO
     Route: 065
     Dates: start: 201609
  2. PROPAFENONE. [Concomitant]
     Active Substance: PROPAFENONE
     Indication: ATRIAL FIBRILLATION
     Dosage: UNK UNK, BID
     Dates: start: 1996

REACTIONS (7)
  - Arthralgia [Unknown]
  - Myalgia [Unknown]
  - Ear pain [Unknown]
  - Cardiac fibrillation [Unknown]
  - Headache [Unknown]
  - Pain in extremity [Unknown]
  - Neck pain [Unknown]

NARRATIVE: CASE EVENT DATE: 201609
